FAERS Safety Report 15263429 (Version 1)
Quarter: 2018Q3

REPORT INFORMATION
  Report Type: Report from Study
  Country: TR (occurrence: TR)
  Receive Date: 20180810
  Receipt Date: 20180810
  Transmission Date: 20181010
  Serious: Yes (Other)
  Sender: FDA-Public Use
  Company Number: TR-TEVA-2018-TR-941777

PATIENT
  Age: 47 Year
  Sex: Male

DRUGS (1)
  1. OXALIPLATIN. [Suspect]
     Active Substance: OXALIPLATIN
     Indication: COLON CANCER
     Route: 065

REACTIONS (5)
  - Splenomegaly [Unknown]
  - Venoocclusive liver disease [Unknown]
  - Hepatic function abnormal [Unknown]
  - Portal hypertension [Unknown]
  - Hepatic enzyme increased [Unknown]
